FAERS Safety Report 5367946-1 (Version None)
Quarter: 2007Q2

REPORT INFORMATION
  Report Type: 
  Country: None (occurrence: None)
  Receive Date: 20070622
  Receipt Date: 20070618
  Transmission Date: 20071010
  Serious: Yes (Life-Threatening, Hospitalization)
  Sender: FDA-Public Use
  Company Number: PH-PFIZER INC-2007045117

PATIENT
  Sex: Male
  Weight: 75 kg

DRUGS (5)
  1. NEURONTIN [Suspect]
     Indication: POST HERPETIC NEURALGIA
     Route: 048
     Dates: start: 20070410, end: 20070410
  2. THIAMINE HCL [Concomitant]
  3. VITAMIN B6 [Concomitant]
  4. VITAMIN B-12 [Concomitant]
  5. MEFENAMIC ACID [Concomitant]

REACTIONS (4)
  - DYSARTHRIA [None]
  - FATIGUE [None]
  - SOMNOLENCE [None]
  - TRISMUS [None]
